FAERS Safety Report 20622911 (Version 1)
Quarter: 2022Q1

REPORT INFORMATION
  Report Type: Spontaneous
  Country: US (occurrence: US)
  Receive Date: 20220322
  Receipt Date: 20220322
  Transmission Date: 20220423
  Serious: No
  Sender: FDA-Public Use
  Company Number: US-KYOWAKIRIN-2022BKK003746

PATIENT

DRUGS (4)
  1. CRYSVITA [Suspect]
     Active Substance: BUROSUMAB-TWZA
     Indication: Hereditary hypophosphataemic rickets
     Dosage: 30 MG AND 20 MG COMBINED TO 50 MG, EVERY 4 WEEKS
     Route: 058
     Dates: start: 20220307
  2. CRYSVITA [Suspect]
     Active Substance: BUROSUMAB-TWZA
     Dosage: 30 MG AND 20 MG COMBINED TO 50 MG, EVERY 4 WEEKS
     Route: 058
     Dates: start: 20180703
  3. CRYSVITA [Suspect]
     Active Substance: BUROSUMAB-TWZA
     Indication: Hereditary hypophosphataemic rickets
     Dosage: 30 MG AND 20 MG COMBINED TO 50 MG, EVERY 4 WEEKS
     Route: 058
     Dates: start: 20220307
  4. CRYSVITA [Suspect]
     Active Substance: BUROSUMAB-TWZA
     Dosage: 30 MG AND 20 MG COMBINED TO 50 MG, EVERY 4 WEEKS
     Route: 058
     Dates: start: 20180703

REACTIONS (1)
  - Inappropriate schedule of product administration [Recovered/Resolved]

NARRATIVE: CASE EVENT DATE: 20220301
